FAERS Safety Report 19763579 (Version 1)
Quarter: 2021Q3

REPORT INFORMATION
  Report Type: Spontaneous
  Country: IR (occurrence: IR)
  Receive Date: 20210830
  Receipt Date: 20210830
  Transmission Date: 20211014
  Serious: Yes (Other)
  Sender: FDA-Public Use
  Company Number: IR-MYLANLABS-2021M1057396

PATIENT
  Age: 44 Year
  Sex: Female

DRUGS (14)
  1. CYTARABINE. [Suspect]
     Active Substance: CYTARABINE
     Dosage: PART OF FLUDARABINE?CYTARABINE?IDARUBICIN (FLAG?IDA) REGIMEN
     Route: 065
  2. CYTARABINE. [Suspect]
     Active Substance: CYTARABINE
     Dosage: PART OF FLUDARABINE?CYTARABINE?MITOXANTRONE REGIMEN
     Route: 065
  3. FLUDARABINE [Suspect]
     Active Substance: FLUDARABINE PHOSPHATE
     Dosage: PART OF FLUDARABINE?CYTARABINE?MITOXANTRONE REGIMEN
     Route: 065
  4. MITOXANTRONE [Suspect]
     Active Substance: MITOXANTRONE HYDROCHLORIDE
     Indication: MYELOID LEUKAEMIA
     Dosage: PART OF FLUDARABINE?CYTARABINE?MITOXANTRONE REGIMEN
     Route: 065
  5. METHOTREXATE. [Suspect]
     Active Substance: METHOTREXATE
     Indication: PROPHYLAXIS AGAINST GRAFT VERSUS HOST DISEASE
     Dosage: SHORT TERM
     Route: 065
  6. MYCOPHENOLATE MOFETIL. [Suspect]
     Active Substance: MYCOPHENOLATE MOFETIL
     Indication: PROPHYLAXIS AGAINST GRAFT VERSUS HOST DISEASE
     Dosage: UNK
     Route: 065
  7. CYTARABINE. [Suspect]
     Active Substance: CYTARABINE
     Indication: MYELOID LEUKAEMIA
     Dosage: 7+3 WITH CYTARABINE AND UNSPECIFIED ANTHRACYCLINE
     Route: 065
  8. ACYCLOVIR                          /00587301/ [Concomitant]
     Active Substance: ACYCLOVIR
     Indication: ANTIVIRAL PROPHYLAXIS
     Dosage: UNK
     Route: 065
  9. IDARUBICIN [Suspect]
     Active Substance: IDARUBICIN
     Indication: MYELOID LEUKAEMIA
     Dosage: PART OF FLUDARABINE?CYTARABINE?IDARUBICIN (FLAG?IDA) REGIMEN
     Route: 065
  10. CYCLOPHOSPHAMIDE. [Suspect]
     Active Substance: CYCLOPHOSPHAMIDE
     Indication: BONE MARROW CONDITIONING REGIMEN
     Dosage: 120 MILLIGRAM/KILOGRAM
     Route: 065
  11. ANTITHYMOCYTE IMMUNOGLOBULIN [Suspect]
     Active Substance: THYMOCYTE IMMUNE GLOBULIN NOS
     Indication: BONE MARROW CONDITIONING REGIMEN
     Dosage: 2.5 MILLIGRAM/KILOGRAM
     Route: 065
  12. CYCLOSPORIN A [Suspect]
     Active Substance: CYCLOSPORINE
     Indication: PROPHYLAXIS AGAINST GRAFT VERSUS HOST DISEASE
     Dosage: UNK
     Route: 065
  13. FLUDARABINE [Suspect]
     Active Substance: FLUDARABINE PHOSPHATE
     Indication: MYELOID LEUKAEMIA
     Dosage: PART OF FLUDARABINE?CYTARABINE?IDARUBICIN (FLAG?IDA) REGIMEN
     Route: 065
  14. BUSULFAN. [Suspect]
     Active Substance: BUSULFAN
     Indication: BONE MARROW CONDITIONING REGIMEN
     Dosage: 14 MILLIGRAM/KILOGRAM
     Route: 065

REACTIONS (1)
  - Kaposi^s sarcoma [Recovered/Resolved]
